FAERS Safety Report 6819792-7 (Version None)
Quarter: 2010Q3

REPORT INFORMATION
  Report Type: 
  Country: None (occurrence: None)
  Receive Date: 20100707
  Receipt Date: 20100624
  Transmission Date: 20110219
  Serious: Yes (Other)
  Sender: FDA-Public Use
  Company Number: PHHY2010US38189

PATIENT
  Sex: Female

DRUGS (6)
  1. CLOZARIL [Suspect]
     Indication: SCHIZOAFFECTIVE DISORDER
     Dosage: 100 MG, QD
     Dates: start: 20100301
  2. ANTIBIOTICS [Concomitant]
  3. DEPAKOTE [Concomitant]
     Indication: AFFECTIVE DISORDER
     Dosage: 500 MG QAM AND 750 MG QHS
     Route: 048
  4. COGENTIN [Concomitant]
     Indication: DROOLING
     Dosage: 0.5 MG, BID
     Route: 048
  5. LITHIUM CARBONATE [Concomitant]
     Indication: AFFECTIVE DISORDER
     Dosage: 300 MG QAM AND 600 MG QHS
     Route: 048
  6. THORAZINE [Concomitant]
     Indication: THINKING ABNORMAL
     Dosage: 50 MG, TID
     Route: 048

REACTIONS (6)
  - HAEMATOCRIT DECREASED [None]
  - HAEMOGLOBIN DECREASED [None]
  - NEUTROPHIL COUNT INCREASED [None]
  - TOOTH INFECTION [None]
  - WHITE BLOOD CELL COUNT DECREASED [None]
  - WHITE BLOOD CELL COUNT INCREASED [None]
